FAERS Safety Report 7050312-0 (Version None)
Quarter: 2010Q4

REPORT INFORMATION
  Report Type: 
  Country: None (occurrence: None)
  Receive Date: 20101013
  Receipt Date: 20100928
  Transmission Date: 20110411
  Serious: Yes (Death)
  Sender: FDA-Public Use
  Company Number: FKO201000406

PATIENT
  Age: 25 Year
  Sex: Male

DRUGS (6)
  1. CISPLATIN [Suspect]
     Indication: TESTICULAR EMBRYONAL CARCINOMA
  2. CISPLATIN [Suspect]
     Indication: TESTICULAR GERM CELL CANCER
  3. ETOPOSIDE [Suspect]
     Indication: TESTICULAR EMBRYONAL CARCINOMA
  4. ETOPOSIDE [Suspect]
     Indication: TESTICULAR GERM CELL CANCER
  5. BLEOMYCIN SULFATE [Suspect]
     Indication: TESTICULAR EMBRYONAL CARCINOMA
  6. BLEOMYCIN SULFATE [Suspect]
     Indication: TESTICULAR GERM CELL CANCER

REACTIONS (3)
  - ACUTE MYELOID LEUKAEMIA [None]
  - ANAEMIA [None]
  - THROMBOCYTOPENIA [None]
